FAERS Safety Report 18560277 (Version 1)
Quarter: 2020Q4

REPORT INFORMATION
  Report Type: Report from Study
  Country: RO (occurrence: RO)
  Receive Date: 20201130
  Receipt Date: 20201130
  Transmission Date: 20210114
  Serious: Yes (Death, Other)
  Sender: FDA-Public Use
  Company Number: RO-TAKEDA-2020TUS053679

PATIENT
  Age: 76 Year
  Sex: Male

DRUGS (13)
  1. IXAZOMIB [Suspect]
     Active Substance: IXAZOMIB
     Indication: PLASMA CELL MYELOMA
     Dosage: 4 MILLIGRAM
     Route: 048
     Dates: start: 20200515, end: 20201117
  2. DEXAMETHASONE. [Suspect]
     Active Substance: DEXAMETHASONE
     Indication: PLASMA CELL MYELOMA
     Dosage: 40 MILLIGRAM, QD
     Route: 065
     Dates: start: 20200515, end: 20201117
  3. URISAN [PIPEMIDIC ACID] [Concomitant]
     Indication: RENAL DISORDER
     Dosage: UNK UNK, QD
     Route: 065
     Dates: end: 20201117
  4. DHC [Concomitant]
     Active Substance: DIHYDROCODEINE BITARTRATE
     Indication: PAIN
     Dosage: UNK UNK, QD
     Route: 065
     Dates: end: 20201117
  5. OMNIC TOCAS [Concomitant]
     Active Substance: TAMSULOSIN HYDROCHLORIDE
     Indication: PROSTATE CANCER
     Dosage: UNK UNK, QD
     Dates: end: 20201117
  6. FUROSEMIDE. [Concomitant]
     Active Substance: FUROSEMIDE
     Indication: HYPERTENSION
     Dosage: UNK UNK, QD
     Route: 065
     Dates: end: 20201117
  7. CORDARONE [Concomitant]
     Active Substance: AMIODARONE HYDROCHLORIDE
     Indication: HYPERTENSION
     Dosage: UNK UNK, QD
     Route: 065
     Dates: end: 20201117
  8. CONTROL [LIDOCAINE] [Concomitant]
     Indication: PROPHYLAXIS
     Dosage: UNK UNK, QD
     Route: 065
     Dates: end: 20201117
  9. ELIQUIS [Concomitant]
     Active Substance: APIXABAN
     Indication: PLASMA CELL MYELOMA
     Dosage: UNK UNK, QD
     Route: 065
     Dates: end: 20201117
  10. THIOSSEN [Concomitant]
     Active Substance: .ALPHA.-LIPOIC ACID
     Indication: NERVOUS SYSTEM DISORDER
     Dosage: UNK UNK, QD
     Route: 065
     Dates: end: 20201117
  11. LENALIDOMIDE [Suspect]
     Active Substance: LENALIDOMIDE
     Indication: PLASMA CELL MYELOMA
     Dosage: 5 MILLIGRAM, QD
     Route: 065
     Dates: start: 20200515, end: 20201117
  12. URACTIV [Concomitant]
     Indication: RENAL DISORDER
     Dosage: UNK UNK, QD
     Route: 065
     Dates: end: 20201117
  13. NEBILET [Concomitant]
     Active Substance: NEBIVOLOL
     Indication: HYPERTENSION
     Dosage: UNK UNK, QD
     Route: 065
     Dates: end: 20201117

REACTIONS (3)
  - Neoplasm malignant [Fatal]
  - Cardio-respiratory arrest [Fatal]
  - Cerebrovascular accident [Fatal]

NARRATIVE: CASE EVENT DATE: 20201117
